FAERS Safety Report 9067715 (Version 1)
Quarter: 2013Q1

REPORT INFORMATION
  Report Type: Spontaneous
  Country: JP (occurrence: JP)
  Receive Date: 20130128
  Receipt Date: 20130128
  Transmission Date: 20140127
  Serious: Yes (Other)
  Sender: FDA-Public Use
  Company Number: JP-BRISTOL-MYERS SQUIBB COMPANY-17316357

PATIENT
  Age: 2 Year
  Sex: 0

DRUGS (1)
  1. METGLUCO [Suspect]
     Dosage: TAB
     Route: 048

REACTIONS (1)
  - Accidental exposure to product by child [Unknown]
